FAERS Safety Report 18522829 (Version 3)
Quarter: 2021Q1

REPORT INFORMATION
  Report Type: Spontaneous
  Country: TN (occurrence: TN)
  Receive Date: 20201119
  Receipt Date: 20210308
  Transmission Date: 20210419
  Serious: Yes (Hospitalization)
  Sender: FDA-Public Use
  Company Number: TN-LUPIN PHARMACEUTICALS INC.-2020-08642

PATIENT
  Age: 29 Year
  Sex: Female

DRUGS (3)
  1. NICARDIPINE HYDROCHLORIDE. [Suspect]
     Active Substance: NICARDIPINE HYDROCHLORIDE
     Indication: TOCOLYSIS
     Dosage: 100 MILLIGRAM, QD
     Route: 065
  2. LEVOTHYROXINE. [Suspect]
     Active Substance: LEVOTHYROXINE
     Indication: PITUITARY APOPLEXY
     Dosage: 25 MICROGRAM, UNK
     Route: 065
  3. HYDROCORTISONE. [Suspect]
     Active Substance: HYDROCORTISONE
     Indication: PITUITARY APOPLEXY
     Dosage: 20 MILLIGRAM, UNK
     Route: 065

REACTIONS (1)
  - Exposure during pregnancy [Unknown]
